FAERS Safety Report 8508367 (Version 3)
Quarter: 2012Q4

REPORT INFORMATION
  Report Type: 
  Country: US (occurrence: US)
  Receive Date: 20120412
  Receipt Date: 20120928
  Transmission Date: 20130627
  Serious: Yes (Other)
  Sender: FDA-Public Use
  Company Number: US-ASTRAZENECA-2011SE51553

PATIENT
  Age: 82 Year
  Sex: Female

DRUGS (2)
  1. NEXIUM [Suspect]
     Route: 048
  2. PREDNISONE [Concomitant]

REACTIONS (6)
  - Neoplasm malignant [Unknown]
  - Lung neoplasm malignant [Unknown]
  - Thyroid disorder [Unknown]
  - Oesophageal disorder [Unknown]
  - Cough [Unknown]
  - Malaise [Unknown]
